FAERS Safety Report 24017375 (Version 2)
Quarter: 2024Q3

REPORT INFORMATION
  Report Type: Spontaneous
  Country: US (occurrence: US)
  Receive Date: 20240627
  Receipt Date: 20240718
  Transmission Date: 20241017
  Serious: No
  Sender: TAKEDA
  Company Number: US-TAKEDA-2024TUS060159

PATIENT
  Age: 67 Year
  Sex: Male

DRUGS (3)
  1. FRUQUINTINIB [Suspect]
     Active Substance: FRUQUINTINIB
     Indication: Rectosigmoid cancer
     Dosage: 5 MILLIGRAM, QD
     Route: 048
     Dates: start: 20240517
  2. ONDANSETRON [Concomitant]
     Active Substance: ONDANSETRON
     Indication: Product used for unknown indication
     Dosage: 8 MILLIGRAM
     Route: 065
  3. PROCHLORPERAZINE [Concomitant]
     Active Substance: PROCHLORPERAZINE
     Indication: Product used for unknown indication
     Dosage: 10 MILLIGRAM
     Route: 065

REACTIONS (10)
  - Dry skin [Unknown]
  - Dysphonia [Unknown]
  - Epistaxis [Unknown]
  - Fatigue [Unknown]
  - Muscle tightness [Unknown]
  - Cyst [Unknown]
  - Hyperkeratosis [Unknown]
  - Pain in extremity [Unknown]
  - Blood pressure increased [Unknown]
  - Arthralgia [Unknown]
